FAERS Safety Report 11058444 (Version 1)
Quarter: 2015Q2

REPORT INFORMATION
  Report Type: Spontaneous
  Country: US (occurrence: None)
  Receive Date: 20150420
  Receipt Date: 20150420
  Transmission Date: 20150821
  Serious: No
  Sender: FDA-Public Use
  Company Number: AEGR001120

PATIENT
  Age: 48 Year
  Sex: Female
  Weight: 110.2 kg

DRUGS (26)
  1. JUXTAPID [Suspect]
     Active Substance: LOMITAPIDE MESYLATE
     Indication: TYPE IIA HYPERLIPIDAEMIA
     Route: 048
     Dates: start: 20130522, end: 20140603
  2. DIOVAN [Concomitant]
     Active Substance: VALSARTAN
  3. CLARITIN [Concomitant]
     Active Substance: LORATADINE
  4. LANTUS [Concomitant]
     Active Substance: INSULIN GLARGINE
  5. LORAZEPAM. [Concomitant]
     Active Substance: LORAZEPAM
  6. METOCLOPRAMIDE HCL [Concomitant]
     Active Substance: METOCLOPRAMIDE HYDROCHLORIDE
  7. SYMBICORT [Concomitant]
     Active Substance: BUDESONIDE\FORMOTEROL FUMARATE DIHYDRATE
  8. TOPIRAMATE. [Concomitant]
     Active Substance: TOPIRAMATE
  9. ZETIA [Concomitant]
     Active Substance: EZETIMIBE
  10. NEXIUM [Concomitant]
     Active Substance: ESOMEPRAZOLE MAGNESIUM
  11. ESCITALOPRAM [Concomitant]
     Active Substance: ESCITALOPRAM OXALATE
  12. GABAPENTIN. [Concomitant]
     Active Substance: GABAPENTIN
  13. NOVOLOG [Concomitant]
     Active Substance: INSULIN ASPART
  14. OMEGA 3-6-9 (FISH OIL, TOCOPHEROL) [Concomitant]
  15. VITAMIN E [Concomitant]
     Active Substance: .ALPHA.-TOCOPHEROL
  16. ROBAXIN (METHOCARBAMOL) [Concomitant]
  17. TRILIPIX [Concomitant]
     Active Substance: FENOFIBRIC ACID
  18. AMLODIPINE [Concomitant]
     Active Substance: AMLODIPINE BESYLATE
  19. METHOTREXATE [Concomitant]
     Active Substance: METHOTREXATE
  20. PRAZOSIN (PRAZOSIN HYDROCHLORIDE) [Concomitant]
  21. BYSTOLIC [Concomitant]
     Active Substance: NEBIVOLOL HYDROCHLORIDE
  22. BUPROPION (BUPROPION HYDROCHLORIDE) [Concomitant]
  23. RITUXAN [Concomitant]
     Active Substance: RITUXIMAB
  24. CRESTOR [Concomitant]
     Active Substance: ROSUVASTATIN CALCIUM
  25. SINGULAIR (MONTELUKAST SODIUM) [Concomitant]
  26. VITAMIN B 12 (VITAMIN B NOS) [Concomitant]

REACTIONS (2)
  - Gastrointestinal disorder [None]
  - Dysphagia [None]
